FAERS Safety Report 4357705-0 (Version None)
Quarter: 2004Q2

REPORT INFORMATION
  Report Type: 
  Country: None (occurrence: None)
  Receive Date: 20040511
  Receipt Date: 20040504
  Transmission Date: 20050107
  Serious: Yes (Death, Hospitalization)
  Sender: FDA-Public Use
  Company Number: FRWYE741004MAY04

PATIENT
  Age: 96 Year
  Sex: Female

DRUGS (8)
  1. EFFEXOR [Suspect]
     Indication: DEPRESSION
     Dosage: 50 MG 3X PER 1 DAY; ORAL
     Route: 048
     Dates: start: 20040127, end: 20040203
  2. PREVISCAN (FLUINDIONE) [Concomitant]
  3. OMEPRAZOLE [Concomitant]
  4. DIGOXIN [Concomitant]
  5. LASIX [Concomitant]
  6. DI-ANTALVIC (DEXTROPROPOXYPHENE HYDROCHLORIDE/PARACETAMOL) [Concomitant]
  7. XALATAN [Concomitant]
  8. POTASSIUM CHLORIDE [Concomitant]

REACTIONS (15)
  - ACUTE PRERENAL FAILURE [None]
  - ANTIDEPRESSANT DRUG LEVEL ABOVE THERAPEUTIC [None]
  - COMA [None]
  - HYPERKALAEMIA [None]
  - HYPERNATRAEMIA [None]
  - HYPERTONIA [None]
  - HYPOTENSION [None]
  - MUSCULOSKELETAL STIFFNESS [None]
  - MYOCLONUS [None]
  - PERIPHERAL ISCHAEMIA [None]
  - PUPIL FIXED [None]
  - PYREXIA [None]
  - SEROTONIN SYNDROME [None]
  - TRISMUS [None]
  - WHITE BLOOD CELL COUNT INCREASED [None]
